FAERS Safety Report 19888246 (Version 1)
Quarter: 2021Q3

REPORT INFORMATION
  Report Type: Spontaneous
  Country: JP (occurrence: JP)
  Receive Date: 20210927
  Receipt Date: 20210927
  Transmission Date: 20211014
  Serious: Yes (Other)
  Sender: FDA-Public Use
  Company Number: NVSJ2021JP014132

PATIENT
  Age: 77 Year
  Sex: Male

DRUGS (2)
  1. PACLITAXEL. [Concomitant]
     Active Substance: PACLITAXEL
     Indication: BLADDER CANCER
     Dosage: UNK
     Route: 065
     Dates: start: 201901
  2. CARBOPLATIN. [Suspect]
     Active Substance: CARBOPLATIN
     Indication: BLADDER CANCER
     Dosage: UNK
     Route: 065
     Dates: start: 201901

REACTIONS (2)
  - Fatigue [Unknown]
  - Neuralgia [Unknown]
